FAERS Safety Report 6343256-0 (Version None)
Quarter: 2009Q3

REPORT INFORMATION
  Report Type: 
  Country: None (occurrence: None)
  Receive Date: 20090908
  Receipt Date: 20090827
  Transmission Date: 20100115
  Serious: Yes (Other)
  Sender: FDA-Public Use
  Company Number: PHHY2009IT36430

PATIENT
  Sex: Male

DRUGS (3)
  1. ZOMETA [Suspect]
     Indication: MULTIPLE MYELOMA
     Dosage: 4 MG, QMO
     Route: 042
     Dates: start: 20010101, end: 20071231
  2. SOLDESAM [Concomitant]
     Dosage: 4 MG, UNK
     Dates: start: 20080801, end: 20081231
  3. REVLIMID [Concomitant]
     Dosage: 5 MG, UNK

REACTIONS (1)
  - OSTEONECROSIS [None]
